FAERS Safety Report 4706816-6 (Version None)
Quarter: 2005Q3

REPORT INFORMATION
  Report Type: 
  Country: None (occurrence: None)
  Receive Date: 20050705
  Receipt Date: 20050622
  Transmission Date: 20060218
  Serious: Yes (Hospitalization)
  Sender: FDA-Public Use
  Company Number: MK200506-0336-1

PATIENT
  Age: 85 Year
  Sex: Female

DRUGS (8)
  1. NEUTROSPEC [Suspect]
     Indication: PYREXIA
     Dosage: 19 MCI, ONE TIME, IV
     Route: 042
     Dates: start: 20050622, end: 20050622
  2. XANAX [Concomitant]
  3. TRAZODONE [Concomitant]
  4. OMEPRAZOLE [Concomitant]
  5. QUININE SULFATE [Concomitant]
  6. DIGITEK [Concomitant]
  7. LEVOTHYROXINE [Concomitant]
  8. COUMADIN [Concomitant]

REACTIONS (9)
  - ATRIAL FIBRILLATION [None]
  - BLOOD PRESSURE SYSTOLIC INCREASED [None]
  - CONVULSION [None]
  - CYANOSIS [None]
  - DEPRESSED LEVEL OF CONSCIOUSNESS [None]
  - DYSPNOEA [None]
  - MYOCARDIAL INFARCTION [None]
  - OXYGEN SATURATION DECREASED [None]
  - RESPIRATORY RATE INCREASED [None]
